FAERS Safety Report 6067874-2 (Version None)
Quarter: 2009Q1

REPORT INFORMATION
  Report Type: 
  Country: None (occurrence: None)
  Receive Date: 20090203
  Receipt Date: 20090120
  Transmission Date: 20090719
  Serious: Yes (Death)
  Sender: FDA-Public Use
  Company Number: KV200900114

PATIENT
  Age: 76 Year
  Sex: Female
  Weight: 65.8 kg

DRUGS (3)
  1. ISOSORBIDE MONONITRATE [Suspect]
     Indication: ARTERIAL OCCLUSIVE DISEASE
     Dosage: QD, ORAL
     Route: 048
     Dates: start: 20080801, end: 20080101
  2. ADVAIR DISKUS 100/50 [Concomitant]
  3. NUMEROUS UNSPECIFIED MEICATIONS [Concomitant]

REACTIONS (6)
  - ASTHENIA [None]
  - DISEASE RECURRENCE [None]
  - DIZZINESS [None]
  - DYSSTASIA [None]
  - PNEUMONIA [None]
  - PRODUCT QUALITY ISSUE [None]
